FAERS Safety Report 6300333-8 (Version None)
Quarter: 2009Q3

REPORT INFORMATION
  Report Type: 
  Country: None (occurrence: None)
  Receive Date: 20090804
  Receipt Date: 20090722
  Transmission Date: 20100115
  Serious: Yes (Hospitalization, Other)
  Sender: FDA-Public Use
  Company Number: 1-19259152

PATIENT
  Sex: Male

DRUGS (12)
  1. WARFARIN SODIUM [Suspect]
     Dosage: ORAL
     Route: 048
  2. CLOPIDOGREL [Concomitant]
  3. ACETYLSALICYLIC ACID [Concomitant]
  4. LISINOPRIL [Concomitant]
  5. AMLODIPINE [Concomitant]
  6. LANSOPRAZOLE [Concomitant]
  7. IMOVANE (ZOPICLONE) [Concomitant]
  8. LORAZEPAM [Concomitant]
  9. ALBUTEROL [Concomitant]
  10. ATORVASTATIN [Concomitant]
  11. FERROUS GLUCONATE [Concomitant]
  12. MULTI-VITAMIN [Concomitant]

REACTIONS (16)
  - ARTERIOVENOUS GRAFT ANEURYSM [None]
  - CHRONIC OBSTRUCTIVE PULMONARY DISEASE [None]
  - CONDITION AGGRAVATED [None]
  - CONTRAST MEDIA REACTION [None]
  - CREPITATIONS [None]
  - GASTRIC FISTULA [None]
  - GASTRIC ULCER HAEMORRHAGE [None]
  - HAEMATEMESIS [None]
  - HAEMODIALYSIS [None]
  - HAEMODYNAMIC INSTABILITY [None]
  - HAEMOGLOBIN DECREASED [None]
  - HYPOVOLAEMIA [None]
  - NEPHROPATHY [None]
  - OCCULT BLOOD POSITIVE [None]
  - PNEUMONIA [None]
  - RENAL FAILURE [None]
